FAERS Safety Report 8799286 (Version 2)
Quarter: 2012Q4

REPORT INFORMATION
  Report Type: 
  Country: US (occurrence: US)
  Receive Date: 20120919
  Receipt Date: 20121121
  Transmission Date: 20130627
  Serious: Yes (Disabling, Other)
  Sender: FDA-Public Use
  Company Number: US-CELGENEUS-163-21880-12091075

PATIENT
  Age: 65 Year
  Sex: Male

DRUGS (1)
  1. REVLIMID [Suspect]
     Indication: MYELOFIBROSIS
     Dosage: 10 Milligram
     Route: 048
     Dates: start: 20120905

REACTIONS (2)
  - Haemoptysis [Not Recovered/Not Resolved]
  - Platelet count decreased [Recovering/Resolving]
